FAERS Safety Report 5898608-X (Version None)
Quarter: 2008Q3

REPORT INFORMATION
  Report Type: 
  Country: None (occurrence: None)
  Receive Date: 20080925
  Receipt Date: 20080226
  Transmission Date: 20090109
  Serious: No
  Sender: FDA-Public Use
  Company Number: A0711941A

PATIENT
  Age: 71 Year
  Sex: Male

DRUGS (3)
  1. WELLBUTRIN XL [Suspect]
     Indication: DEPRESSION
     Dosage: 300MG PER DAY
     Route: 048
     Dates: start: 20070301
  2. ZOCOR [Concomitant]
  3. DIOVAN [Concomitant]

REACTIONS (2)
  - DECREASED INTEREST [None]
  - FATIGUE [None]
